FAERS Safety Report 26119304 (Version 1)
Quarter: 2025Q4

REPORT INFORMATION
  Report Type: Spontaneous
  Country: US (occurrence: US)
  Receive Date: 20251204
  Receipt Date: 20251204
  Transmission Date: 20260117
  Serious: No
  Sender: GLAXOSMITHKLINE
  Company Number: US-GSK-US2025AMR155195

PATIENT
  Sex: Female

DRUGS (2)
  1. LAMICTAL [Suspect]
     Active Substance: LAMOTRIGINE
     Indication: Product used for unknown indication
     Dosage: UNK
  2. TREPROSTINIL [Suspect]
     Active Substance: TREPROSTINIL
     Indication: Pulmonary arterial hypertension
     Dosage: UNK 30NG/KG/MIN

REACTIONS (7)
  - Fatigue [Unknown]
  - Asthenia [Unknown]
  - Blood iron decreased [Unknown]
  - Weight increased [Unknown]
  - Peripheral swelling [Unknown]
  - Fluid retention [Unknown]
  - Joint swelling [Unknown]
